FAERS Safety Report 7199322-3 (Version None)
Quarter: 2010Q4

REPORT INFORMATION
  Report Type: 
  Country: None (occurrence: None)
  Receive Date: 20101223
  Receipt Date: 20101223
  Transmission Date: 20110411
  Serious: Yes (Other)
  Sender: FDA-Public Use
  Company Number: None

PATIENT
  Age: 47 Year
  Sex: Female
  Weight: 43.0917 kg

DRUGS (1)
  1. BOTOX [Suspect]
     Indication: MIGRAINE
     Dosage: 100 UNITS
     Dates: start: 20100831, end: 20100831

REACTIONS (5)
  - ANXIETY [None]
  - DIARRHOEA [None]
  - MUSCLE TWITCHING [None]
  - PRODUCT QUALITY ISSUE [None]
  - TREMOR [None]
